FAERS Safety Report 8642897 (Version 6)
Quarter: 2014Q1

REPORT INFORMATION
  Report Type: Report from Study
  Country: US (occurrence: US)
  Receive Date: 20120629
  Receipt Date: 20140115
  Transmission Date: 20141002
  Serious: Yes (Other)
  Sender: FDA-Public Use
  Company Number: US-CELGENEUS-163-C5013-12062708

PATIENT
  Age: 85 Year
  Sex: Female
  Weight: 58.11 kg

DRUGS (14)
  1. CC-5013 [Suspect]
     Indication: CHRONIC LYMPHOCYTIC LEUKAEMIA
     Dosage: 7.5 MILLIGRAM
     Route: 048
     Dates: start: 20120320
  2. CC-5013 [Suspect]
     Dosage: 7.5 MILLIGRAM
     Route: 048
     Dates: start: 20120612, end: 20120615
  3. CC-5013 [Suspect]
     Dosage: 7.5 MILLIGRAM
     Route: 048
     Dates: start: 20120619, end: 20120906
  4. ALLOPURINOL [Concomitant]
     Indication: PROPHYLAXIS
     Dosage: 300 MILLIGRAM
     Route: 065
     Dates: start: 20120309
  5. ACID REDUCER [Concomitant]
     Indication: GASTROOESOPHAGEAL REFLUX DISEASE
     Route: 065
     Dates: start: 2009
  6. IBUPROFEN [Concomitant]
     Indication: NECK PAIN
     Route: 065
     Dates: start: 1990
  7. IMODIUM [Concomitant]
     Indication: DIARRHOEA
     Route: 065
     Dates: start: 2009
  8. LISINOPRIL [Concomitant]
     Indication: HYPERTENSION
     Dosage: 20 MILLIGRAM
     Route: 065
     Dates: start: 2006
  9. ASPIRIN [Concomitant]
     Indication: THROMBOSIS PROPHYLAXIS
     Dosage: 81 MILLIGRAM
     Route: 065
     Dates: start: 2009
  10. LACTATED RINGERS [Concomitant]
     Indication: DIARRHOEA
     Route: 065
     Dates: start: 20120426, end: 20120426
  11. LACTATED RINGERS [Concomitant]
     Indication: DEHYDRATION
     Dosage: 1000 MILLILITER
     Route: 065
     Dates: start: 20120501, end: 20120501
  12. LACTATED RINGERS [Concomitant]
     Dosage: 1000 MILLILITER
     Route: 065
     Dates: start: 20120605, end: 20120605
  13. PEPCID [Concomitant]
     Indication: ABDOMINAL DISCOMFORT
     Dosage: 20 MILLIGRAM
     Route: 065
     Dates: start: 20120501
  14. OXYCODONE/ACETAMINOPHEN [Concomitant]
     Indication: FLANK PAIN
     Dosage: 5/325MG
     Route: 065
     Dates: start: 20120520

REACTIONS (1)
  - Adenocarcinoma pancreas [Not Recovered/Not Resolved]
